FAERS Safety Report 4417790-4 (Version None)
Quarter: 2004Q2

REPORT INFORMATION
  Report Type: 
  Country: None (occurrence: None)
  Receive Date: 20040621
  Receipt Date: 20040429
  Transmission Date: 20050107
  Serious: No
  Sender: FDA-Public Use
  Company Number: PHEH2004US04822

PATIENT
  Age: 75 Year
  Sex: Female

DRUGS (4)
  1. ZOMETA [Suspect]
     Indication: BENIGN BONE NEOPLASM
     Dosage: ONCE/SINGLE, INTRAVENOUS
     Route: 042
     Dates: start: 20040412
  2. LEVOXYL [Concomitant]
  3. HYDROCHLOROTHIAZIDE [Concomitant]
  4. VIOXX [Concomitant]

REACTIONS (3)
  - BONE PAIN [None]
  - EYE REDNESS [None]
  - RASH PRURITIC [None]
